FAERS Safety Report 7750092-7 (Version None)
Quarter: 2011Q3

REPORT INFORMATION
  Report Type: 
  Country: None (occurrence: None)
  Receive Date: 20110914
  Receipt Date: 20100419
  Transmission Date: 20111222
  Serious: No
  Sender: FDA-Public Use
  Company Number: US-BAYER-201021179NA

PATIENT
  Sex: Female

DRUGS (3)
  1. BACTRUM [Concomitant]
  2. KEFLEX [Concomitant]
  3. MIRENA [Suspect]

REACTIONS (2)
  - VAGINAL HAEMORRHAGE [None]
  - AMENORRHOEA [None]
